FAERS Safety Report 13871347 (Version 6)
Quarter: 2019Q1

REPORT INFORMATION
  Report Type: Spontaneous
  Country: BR (occurrence: BR)
  Receive Date: 20170816
  Receipt Date: 20190122
  Transmission Date: 20190417
  Serious: Yes (Other)
  Sender: FDA-Public Use
  Company Number: BR-PFIZER INC-2016283144

PATIENT
  Age: 57 Year
  Sex: Female

DRUGS (7)
  1. SUTENT [Suspect]
     Active Substance: SUNITINIB MALATE
     Dosage: CYCLIC
     Dates: start: 20160509
  2. SUTENT [Suspect]
     Active Substance: SUNITINIB MALATE
     Indication: RENAL CANCER METASTATIC
     Dosage: 50 MG, 1 TABLET DAILY, CYCLIC (4 / 2 SCHEME)
     Route: 048
     Dates: start: 20160509, end: 20160525
  3. SUTENT [Suspect]
     Active Substance: SUNITINIB MALATE
     Dosage: CYCLIC
     Dates: start: 20160509
  4. AAS [Concomitant]
     Active Substance: ASPIRIN
     Indication: BLOOD VISCOSITY DECREASED
     Dosage: UNK
  5. ATENOLOL. [Concomitant]
     Active Substance: ATENOLOL
     Indication: HYPERTENSION
     Dosage: UNK
     Dates: start: 2016
  6. RITMONORM [Concomitant]
     Active Substance: PROPAFENONE HYDROCHLORIDE
     Indication: ARRHYTHMIA
     Dosage: UNK
  7. ENALAPRIL [Concomitant]
     Active Substance: ENALAPRIL
     Indication: HYPERTENSION
     Dosage: UNK
     Dates: end: 2016

REACTIONS (26)
  - Yellow skin [Recovering/Resolving]
  - Erythema [Not Recovered/Not Resolved]
  - Immunodeficiency [Not Recovered/Not Resolved]
  - Aphthous ulcer [Recovering/Resolving]
  - White blood cell count decreased [Not Recovered/Not Resolved]
  - Blister [Not Recovered/Not Resolved]
  - Vomiting [Not Recovered/Not Resolved]
  - Diarrhoea [Not Recovered/Not Resolved]
  - Mucosal inflammation [Recovering/Resolving]
  - Skin induration [Not Recovered/Not Resolved]
  - Asthenia [Not Recovered/Not Resolved]
  - Blood cholesterol increased [Recovered/Resolved]
  - Feeling abnormal [Unknown]
  - Skin exfoliation [Not Recovered/Not Resolved]
  - Goitre [Recovering/Resolving]
  - Platelet count decreased [Recovering/Resolving]
  - Gait disturbance [Not Recovered/Not Resolved]
  - Pharyngeal oedema [Recovering/Resolving]
  - Pain in extremity [Unknown]
  - Throat irritation [Recovered/Resolved]
  - Eating disorder [Not Recovered/Not Resolved]
  - Hepatitis [Recovered/Resolved]
  - Nausea [Not Recovered/Not Resolved]
  - Impaired work ability [Not Recovered/Not Resolved]
  - Ageusia [Recovering/Resolving]
  - Dysphonia [Recovering/Resolving]

NARRATIVE: CASE EVENT DATE: 2016
